FAERS Safety Report 7375650-3 (Version None)
Quarter: 2011Q1

REPORT INFORMATION
  Report Type: 
  Country: None (occurrence: None)
  Receive Date: 20110325
  Receipt Date: 20110322
  Transmission Date: 20110831
  Serious: Yes (Other)
  Sender: FDA-Public Use
  Company Number: US-PFIZER INC-2011063583

PATIENT
  Sex: Female

DRUGS (1)
  1. TOVIAZ [Suspect]
     Indication: BLADDER DISORDER
     Dosage: 8 MG, DAILY
     Route: 048
     Dates: start: 20110207, end: 20110319

REACTIONS (2)
  - CONFUSIONAL STATE [None]
  - VITAMIN B COMPLEX DEFICIENCY [None]
